FAERS Safety Report 5597637-3 (Version None)
Quarter: 2008Q1

REPORT INFORMATION
  Report Type: 
  Country: None (occurrence: None)
  Receive Date: 20080121
  Receipt Date: 20080108
  Transmission Date: 20080703
  Serious: Yes (Other)
  Sender: FDA-Public Use
  Company Number: US-ELI_LILLY_AND_COMPANY-US200801000194

PATIENT
  Sex: Male

DRUGS (3)
  1. CYMBALTA [Suspect]
     Indication: DEPRESSION
     Dosage: 30 MG, DAILY (1/D)
     Route: 048
     Dates: start: 20071109, end: 20071123
  2. CYMBALTA [Suspect]
     Dosage: 60 MG, DAILY (1/D)
     Route: 048
     Dates: start: 20071124, end: 20071213
  3. ALCOHOL [Concomitant]

REACTIONS (7)
  - AGGRESSION [None]
  - AMNESIA [None]
  - ANGER [None]
  - CONVULSION [None]
  - DRUG INTERACTION [None]
  - INSOMNIA [None]
  - PARAESTHESIA [None]
